FAERS Safety Report 6210683-1 (Version None)
Quarter: 2009Q2

REPORT INFORMATION
  Report Type: 
  Country: None (occurrence: None)
  Receive Date: 20090528
  Receipt Date: 20090528
  Transmission Date: 20091009
  Serious: Yes (Life-Threatening, Hospitalization)
  Sender: FDA-Public Use
  Company Number: None

PATIENT
  Age: 82 Year
  Sex: Female
  Weight: 70 kg

DRUGS (2)
  1. HALOPERIDOL [Suspect]
     Indication: AGITATION
     Dosage: 5 MG Q 4 HOURS PRN IM
     Route: 030
     Dates: start: 20081029, end: 20081030
  2. HALOPERIDOL [Suspect]
     Indication: RESTLESSNESS
     Dosage: 5 MG Q 4 HOURS PRN IM
     Route: 030
     Dates: start: 20081029, end: 20081030

REACTIONS (3)
  - MYOCLONUS [None]
  - NEUROLEPTIC MALIGNANT SYNDROME [None]
  - RESPIRATORY DISTRESS [None]
